FAERS Safety Report 25612932 (Version 1)
Quarter: 2025Q3

REPORT INFORMATION
  Report Type: Spontaneous
  Country: JP (occurrence: JP)
  Receive Date: 20250728
  Receipt Date: 20250728
  Transmission Date: 20251020
  Serious: Yes (Life-Threatening, Hospitalization)
  Sender: PFIZER
  Company Number: JP-PFIZER INC-PV202500088481

PATIENT
  Age: 64 Year
  Sex: Female

DRUGS (3)
  1. CLINDAMYCIN PHOSPHATE [Suspect]
     Active Substance: CLINDAMYCIN PHOSPHATE
     Indication: Streptococcal infection
  2. VANCOMYCIN [Concomitant]
     Active Substance: VANCOMYCIN
     Indication: Streptococcal infection
  3. CEFAZOLIN [Concomitant]
     Active Substance: CEFAZOLIN
     Indication: Streptococcal infection

REACTIONS (2)
  - Long QT syndrome [Recovered/Resolved]
  - Arrhythmia [Recovered/Resolved]
